FAERS Safety Report 8974448 (Version 1)
Quarter: 2012Q4

REPORT INFORMATION
  Report Type: Spontaneous
  Country: KR (occurrence: None)
  Receive Date: 20121214
  Receipt Date: 20121214
  Transmission Date: 20130627
  Serious: Yes (Other)
  Sender: FDA-Public Use
  Company Number: DSA_61303_2012

PATIENT
  Age: 52 Year
  Sex: Male

DRUGS (2)
  1. METRONIDAZOLE (METRONIDAZOLE) [Suspect]
     Indication: BRAIN ABSCESS
  2. CEFTRIAXONE [Concomitant]

REACTIONS (9)
  - Toxic encephalopathy [None]
  - Tinnitus [None]
  - Diplopia [None]
  - Dizziness [None]
  - Dysphagia [None]
  - Hemiparesis [None]
  - VIth nerve paralysis [None]
  - Nystagmus [None]
  - Nuclear magnetic resonance imaging brain abnormal [None]
